FAERS Safety Report 10400636 (Version 1)
Quarter: 2014Q3

REPORT INFORMATION
  Report Type: Spontaneous
  Country: US (occurrence: US)
  Receive Date: 20140821
  Receipt Date: 20140821
  Transmission Date: 20150326
  Serious: No
  Sender: FDA-Public Use
  Company Number: US-ASTRAZENECA-2014SE12282

PATIENT
  Age: 82 Year
  Sex: Female
  Weight: 36.3 kg

DRUGS (3)
  1. MORPHINE [Suspect]
     Active Substance: MORPHINE
  2. LASIX [Concomitant]
     Active Substance: FUROSEMIDE
     Indication: DIURETIC THERAPY
  3. SYMBICORT [Suspect]
     Active Substance: BUDESONIDE\FORMOTEROL FUMARATE DIHYDRATE
     Indication: CHRONIC OBSTRUCTIVE PULMONARY DISEASE
     Dosage: 80/4.5; 2 PUFFS BID
     Route: 055
     Dates: start: 201401

REACTIONS (4)
  - Stomatitis [Unknown]
  - Irritability [Unknown]
  - Off label use [Unknown]
  - Drug hypersensitivity [Unknown]

NARRATIVE: CASE EVENT DATE: 201401
